FAERS Safety Report 6043178-9 (Version None)
Quarter: 2009Q1

REPORT INFORMATION
  Report Type: 
  Country: None (occurrence: None)
  Receive Date: 20090119
  Receipt Date: 20090107
  Transmission Date: 20090719
  Serious: Yes (Other)
  Sender: FDA-Public Use
  Company Number: US-ROCHE-606540

PATIENT
  Age: 70 Year
  Sex: Female

DRUGS (4)
  1. XELODA [Interacting]
     Route: 065
     Dates: end: 20061001
  2. GEMCITABINE [Interacting]
     Route: 065
     Dates: end: 20080201
  3. TAXOTERE [Suspect]
     Dosage: DISCONTINUED AFTER CYCLE 9
     Route: 065
     Dates: end: 20070301
  4. WARFARIN SODIUM [Interacting]
     Indication: ATRIAL FIBRILLATION
     Route: 065

REACTIONS (7)
  - ADENOCARCINOMA PANCREAS [None]
  - DRUG INTERACTION [None]
  - FATIGUE [None]
  - HAEMATOCRIT DECREASED [None]
  - INTERNATIONAL NORMALISED RATIO INCREASED [None]
  - OEDEMA [None]
  - PROTHROMBIN TIME PROLONGED [None]
